FAERS Safety Report 25851257 (Version 1)
Quarter: 2025Q3

REPORT INFORMATION
  Report Type: Spontaneous
  Country: US (occurrence: US)
  Receive Date: 20250926
  Receipt Date: 20250926
  Transmission Date: 20251020
  Serious: No
  Sender: ZYDUS PHARM
  Company Number: US-CADILA HEALTHCARE LIMITED-US-ZYDUS-062164

PATIENT

DRUGS (3)
  1. METFORMIN [Suspect]
     Active Substance: METFORMIN HYDROCHLORIDE
     Indication: Diabetes mellitus
  2. DIGOXIN [Concomitant]
     Active Substance: DIGOXIN
     Indication: Product used for unknown indication
     Route: 065
  3. ATENOLOL [Concomitant]
     Active Substance: ATENOLOL
     Indication: Product used for unknown indication
     Route: 065

REACTIONS (1)
  - Pain in extremity [Not Recovered/Not Resolved]
